FAERS Safety Report 5083224-2 (Version None)
Quarter: 2006Q3

REPORT INFORMATION
  Report Type: 
  Country: None (occurrence: None)
  Receive Date: 20060816
  Receipt Date: 20060804
  Transmission Date: 20061208
  Serious: Yes (Other)
  Sender: FDA-Public Use
  Company Number: CHPA2006US07787

PATIENT
  Age: 44 Year
  Sex: Female
  Weight: 74.8 kg

DRUGS (2)
  1. ECKERD PLP (NCH) (NICOTINE) TRANS-THERAPEUTIC SYSTEM [Suspect]
     Indication: SMOKING CESSATION THERAPY
     Dosage: 21 MG, QD, TRANSDERMAL
     Route: 062
     Dates: start: 20060803
  2. PRILOSEC [Concomitant]

REACTIONS (2)
  - PRODUCTIVE COUGH [None]
  - THROAT TIGHTNESS [None]
